FAERS Safety Report 8250161-1 (Version None)
Quarter: 2012Q2

REPORT INFORMATION
  Report Type: 
  Country: None (occurrence: None)
  Receive Date: 20120402
  Receipt Date: 20120319
  Transmission Date: 20120825
  Serious: Yes (Death, Hospitalization, Other)
  Sender: FDA-Public Use
  Company Number: AR-AMGEN-ARGSP2012018685

PATIENT
  Age: 77 Year
  Sex: Female

DRUGS (2)
  1. DICLOFENAC SODIUM [Concomitant]
     Dosage: UNK
  2. ENBREL [Suspect]
     Indication: RHEUMATOID ARTHRITIS
     Dosage: 50 MG, WEEKLY
     Route: 058
     Dates: start: 20080804

REACTIONS (2)
  - CARDIO-RESPIRATORY ARREST [None]
  - URINARY TRACT INFECTION [None]
